FAERS Safety Report 14448804 (Version 2)
Quarter: 2018Q1

REPORT INFORMATION
  Report Type: Report from Study
  Country: US (occurrence: US)
  Receive Date: 20180126
  Receipt Date: 20180213
  Transmission Date: 20180509
  Serious: Yes (Hospitalization, Other)
  Sender: FDA-Public Use
  Company Number: US-GILEAD-2018-0317933

PATIENT
  Age: 40 Year
  Sex: Female

DRUGS (2)
  1. REVATIO [Concomitant]
     Active Substance: SILDENAFIL CITRATE
  2. AMBRISENTAN [Suspect]
     Active Substance: AMBRISENTAN
     Indication: PRODUCT USED FOR UNKNOWN INDICATION
     Dosage: 10 MG, QD
     Route: 065
     Dates: start: 20160725

REACTIONS (5)
  - Fluid retention [Recovering/Resolving]
  - Pulmonary hypertension [Recovering/Resolving]
  - Fungal infection [Recovering/Resolving]
  - Urinary tract infection [Recovering/Resolving]
  - Hypoglycaemia [Recovering/Resolving]
